FAERS Safety Report 11650295 (Version 2)
Quarter: 2015Q4

REPORT INFORMATION
  Report Type: Spontaneous
  Country: US (occurrence: None)
  Receive Date: 20151021
  Receipt Date: 20151123
  Transmission Date: 20160304
  Serious: Yes (Hospitalization, Other)
  Sender: FDA-Public Use
  Company Number: ADR-2015-00850

PATIENT
  Age: 58 Year
  Sex: Male

DRUGS (1)
  1. LIORESAL [Suspect]
     Active Substance: BACLOFEN
     Indication: MUSCLE SPASTICITY
     Dosage: 305 MCG/DAY

REACTIONS (8)
  - Post procedural infection [None]
  - Bacterial test positive [None]
  - Implant site extravasation [None]
  - Medical device site swelling [None]
  - Medical device site infection [None]
  - Implant site infection [None]
  - Medical device site erosion [None]
  - Patient-device incompatibility [None]
